FAERS Safety Report 9284510 (Version 1)
Quarter: 2013Q2

REPORT INFORMATION
  Report Type: Spontaneous
  Country: US (occurrence: US)
  Receive Date: 20130510
  Receipt Date: 20130510
  Transmission Date: 20140414
  Serious: No
  Sender: FDA-Public Use
  Company Number: US-COVIDIEN/TYCO HEALTHCARE/MALLINCKRODT-T201301405

PATIENT
  Age: 53 Year
  Sex: Female

DRUGS (3)
  1. FENTANYL TRANSDERMAL SYSTEM [Suspect]
     Indication: PAIN
     Dosage: 100 MCG/HR, Q 48 HRS
     Route: 062
     Dates: start: 201301
  2. FENTANYL [Suspect]
     Indication: PAIN
     Dosage: UNK
     Route: 062
     Dates: start: 201203, end: 201301
  3. OXYMORPHONE [Concomitant]
     Indication: BREAKTHROUGH PAIN
     Dosage: 10 MG, UP TO 3 PRN

REACTIONS (2)
  - Application site erosion [Not Recovered/Not Resolved]
  - Application site pruritus [Not Recovered/Not Resolved]
